FAERS Safety Report 8260200-X (Version None)
Quarter: 2012Q2

REPORT INFORMATION
  Report Type: 
  Country: None (occurrence: None)
  Receive Date: 20120404
  Receipt Date: 20120322
  Transmission Date: 20120825
  Serious: Yes (Other)
  Sender: FDA-Public Use
  Company Number: US-MYLANLABS-2012S1006391

PATIENT
  Age: 27 Year
  Sex: Male

DRUGS (3)
  1. PAROXETINE [Interacting]
     Dosage: 30MG PAROXETINE EXTENDED RELEASE
     Route: 065
  2. RISPERIDONE [Concomitant]
     Dosage: NIGHTLY RISPERIDONE 3.5MG
     Route: 065
  3. ZOLPIDEM [Suspect]
     Indication: INSOMNIA
     Dosage: ONE 10MG ZOLPIDEM PILL
     Route: 065

REACTIONS (5)
  - DRUG INTERACTION [None]
  - VISION BLURRED [None]
  - MUSCLE DISORDER [None]
  - MANIA [None]
  - FEELING DRUNK [None]
